FAERS Safety Report 14257387 (Version 2)
Quarter: 2017Q4

REPORT INFORMATION
  Report Type: Report from Study
  Country: None (occurrence: FR)
  Receive Date: 20171207
  Receipt Date: 20171226
  Transmission Date: 20180321
  Serious: No
  Sender: FDA-Public Use
  Company Number: FR-ABBVIE-17K-056-2182742-00

PATIENT
  Sex: Male
  Weight: 121 kg

DRUGS (2)
  1. HUMIRA [Suspect]
     Active Substance: ADALIMUMAB
     Indication: CROHN^S DISEASE
     Route: 058
     Dates: start: 20160928, end: 20170703
  2. METHOTREXATE. [Concomitant]
     Active Substance: METHOTREXATE
     Indication: CROHN^S DISEASE
     Route: 048
     Dates: start: 20161224, end: 20170701

REACTIONS (5)
  - Paradoxical drug reaction [Unknown]
  - Dyspnoea exertional [Unknown]
  - Weight increased [Not Recovered/Not Resolved]
  - Muscle fatigue [Unknown]
  - Skin discolouration [Unknown]

NARRATIVE: CASE EVENT DATE: 2016
